FAERS Safety Report 5029142-7 (Version None)
Quarter: 2006Q2

REPORT INFORMATION
  Report Type: 
  Country: None (occurrence: None)
  Receive Date: 20060615
  Receipt Date: 20060615
  Transmission Date: 20061013
  Serious: Yes (Disabling)
  Sender: FDA-Public Use
  Company Number: None

PATIENT
  Age: 34 Year
  Sex: Male

DRUGS (9)
  1. OXALIPLATIN [Suspect]
     Indication: COLORECTAL CANCER
     Dosage: 146MG IV
     Route: 042
     Dates: start: 20060307, end: 20060321
  2. FLUOROURACIL [Concomitant]
  3. LEUCOVORIN [Concomitant]
  4. ONDANSETRON HCL [Concomitant]
  5. DECADRON [Concomitant]
  6. AVASTIN [Concomitant]
  7. FERROUS SULFATE TAB [Concomitant]
  8. PYRIDOXINE HCL [Concomitant]
  9. ASCORBIC ACID [Concomitant]

REACTIONS (10)
  - CHEST DISCOMFORT [None]
  - COUGH [None]
  - DYSPNOEA [None]
  - FEELING HOT [None]
  - FLUSHING [None]
  - HYPOAESTHESIA ORAL [None]
  - INFUSION RELATED REACTION [None]
  - PARAESTHESIA ORAL [None]
  - PRURITUS [None]
  - RASH ERYTHEMATOUS [None]
